FAERS Safety Report 17783339 (Version 1)
Quarter: 2020Q2

REPORT INFORMATION
  Report Type: Spontaneous
  Country: US (occurrence: US)
  Receive Date: 20200513
  Receipt Date: 20200513
  Transmission Date: 20200714
  Serious: Yes (Hospitalization)
  Sender: FDA-Public Use
  Company Number: None

PATIENT
  Age: 60 Year
  Sex: Female
  Weight: 110 kg

DRUGS (1)
  1. WARFARIN WARFARIN NA (EXELAN) 5MG TAB) [Suspect]
     Active Substance: WARFARIN SODIUM
     Indication: PULMONARY OEDEMA
     Dates: start: 20150604, end: 20200401

REACTIONS (2)
  - Melaena [None]
  - Dyspnoea [None]

NARRATIVE: CASE EVENT DATE: 20200401
